FAERS Safety Report 4864596-8 (Version None)
Quarter: 2005Q4

REPORT INFORMATION
  Report Type: 
  Country: None (occurrence: None)
  Receive Date: 20051222
  Receipt Date: 20051215
  Transmission Date: 20060501
  Serious: Yes (Hospitalization, Other)
  Sender: FDA-Public Use
  Company Number: US-NOVOPROD-249375

PATIENT
  Age: 83 Year
  Sex: Female
  Weight: 48 kg

DRUGS (13)
  1. PRANDIN [Suspect]
     Indication: DIABETES MELLITUS NON-INSULIN-DEPENDENT
     Dosage: 2 TAB, TID
     Route: 048
     Dates: start: 20051001, end: 20051121
  2. SPIRONOLACTONE [Concomitant]
     Indication: CARDIAC FAILURE CONGESTIVE
  3. NOVODILTAZEM [Concomitant]
     Indication: CARDIAC DISORDER
  4. BUMETANIDE [Concomitant]
     Indication: CARDIAC FAILURE CONGESTIVE
  5. POTASSIUM [Concomitant]
     Indication: DIURETIC THERAPY
  6. FOLIC ACID [Concomitant]
     Indication: ANAEMIA
  7. CENTRUM SILVER [Concomitant]
     Indication: PROPHYLAXIS
  8. OSCAL 500-D [Concomitant]
     Indication: OSTEOPOROSIS
  9. FOSAMAX [Concomitant]
     Indication: OSTEOPOROSIS
  10. SYNTHROID [Concomitant]
     Indication: HYPOTHYROIDISM
  11. SLOW-FE                                 /CAN/ [Concomitant]
     Indication: ANAEMIA
  12. OCUVITE [Concomitant]
     Indication: PROPHYLAXIS
     Dosage: UNK, UNK
  13. WARFARIN [Concomitant]
     Indication: ANTICOAGULANT THERAPY

REACTIONS (2)
  - CELLULITIS [None]
  - PNEUMONIA [None]
